FAERS Safety Report 15525378 (Version 2)
Quarter: 2020Q4

REPORT INFORMATION
  Report Type: Report from Study
  Country: CA (occurrence: CA)
  Receive Date: 20181018
  Receipt Date: 20201007
  Transmission Date: 20210113
  Serious: Yes (Other)
  Sender: FDA-Public Use
  Company Number: PHHY2017CA177908

PATIENT
  Age: 64 Year
  Sex: Male

DRUGS (13)
  1. ENTRESTO [Suspect]
     Active Substance: SACUBITRIL\VALSARTAN
     Dosage: 1 DF, UNKNOWN(97/103 MG)
     Route: 065
     Dates: start: 20171130, end: 20180122
  2. ENTRESTO [Suspect]
     Active Substance: SACUBITRIL\VALSARTAN
     Dosage: 2 DF, UNKNOWN (49/51 MG)
     Route: 065
     Dates: start: 20170419, end: 20170508
  3. ENTRESTO [Suspect]
     Active Substance: SACUBITRIL\VALSARTAN
     Dosage: 1 DF, UNKNOWN(24/26 MG)
     Route: 065
     Dates: start: 20180412, end: 20180426
  4. ENTRESTO [Suspect]
     Active Substance: SACUBITRIL\VALSARTAN
     Dosage: 1 DF, UNKNOWN(24/26 MG)
     Route: 065
     Dates: start: 20180515, end: 20180612
  5. ENTRESTO [Suspect]
     Active Substance: SACUBITRIL\VALSARTAN
     Dosage: 2 DF, UNKNOWN(24/26 MG)
     Route: 065
     Dates: start: 20180613
  6. ENTRESTO [Suspect]
     Active Substance: SACUBITRIL\VALSARTAN
     Dosage: 2 DF, UNKNOWN (97/103 MG)
     Route: 065
     Dates: start: 20170509, end: 20171129
  7. ENTRESTO [Suspect]
     Active Substance: SACUBITRIL\VALSARTAN
     Dosage: 1 DF, UNKNOWN(49/51MG)
     Route: 065
     Dates: start: 20171130, end: 20180122
  8. ENTRESTO [Suspect]
     Active Substance: SACUBITRIL\VALSARTAN
     Dosage: 2 DF, UNKNOWN(49/51 MG)
     Route: 065
     Dates: start: 20180427, end: 20180514
  9. ENTRESTO [Suspect]
     Active Substance: SACUBITRIL\VALSARTAN
     Dosage: 2 DF, UNKNOWN(24/26 MG)
     Route: 065
     Dates: start: 20180207, end: 20180411
  10. ENTRESTO [Suspect]
     Active Substance: SACUBITRIL\VALSARTAN
     Dosage: 2 DF, UNKNOWN(49/51 MG)
     Route: 065
     Dates: start: 20180123, end: 20180206
  11. ENTRESTO [Suspect]
     Active Substance: SACUBITRIL\VALSARTAN
     Dosage: 1 DF, UNKNOWN(49/51MG)
     Route: 065
     Dates: start: 20180412, end: 20180426
  12. ENTRESTO [Suspect]
     Active Substance: SACUBITRIL\VALSARTAN
     Indication: CARDIAC FAILURE
     Dosage: 1 DF (SACUBITRIL 97.2 MG, VALSARTAN 102.8 MG), BID
     Route: 065
     Dates: start: 20170402
  13. ENTRESTO [Suspect]
     Active Substance: SACUBITRIL\VALSARTAN
     Dosage: 1 DF, UNKNOWN(24/26 MG)
     Route: 065
     Dates: start: 20180515, end: 20180612

REACTIONS (8)
  - Concomitant disease aggravated [Not Recovered/Not Resolved]
  - Dyspnoea exertional [Not Recovered/Not Resolved]
  - Constipation [Not Recovered/Not Resolved]
  - Orthostatic hypotension [Not Recovered/Not Resolved]
  - Loss of consciousness [Recovered/Resolved]
  - Limb injury [Recovered/Resolved]
  - Hypotension [Not Recovered/Not Resolved]
  - Head injury [Recovered/Resolved]

NARRATIVE: CASE EVENT DATE: 20171018
